FAERS Safety Report 6263963-8 (Version None)
Quarter: 2009Q3

REPORT INFORMATION
  Report Type: 
  Country: None (occurrence: None)
  Receive Date: 20090706
  Receipt Date: 20080529
  Transmission Date: 20100115
  Serious: Yes (Hospitalization)
  Sender: FDA-Public Use
  Company Number: 08H-163-0314357-00

PATIENT
  Age: 23 Year
  Sex: Female

DRUGS (1)
  1. MARCAINE [Suspect]
     Indication: SPINAL ANAESTHESIA
     Dosage: EPIDURAL
     Route: 008
     Dates: start: 20080317, end: 20080317

REACTIONS (1)
  - MENINGITIS [None]
